FAERS Safety Report 10562568 (Version 3)
Quarter: 2015Q2

REPORT INFORMATION
  Report Type: Report from Study
  Country: TR (occurrence: TR)
  Receive Date: 20141104
  Receipt Date: 20150522
  Transmission Date: 20150821
  Serious: Yes (Hospitalization)
  Sender: FDA-Public Use
  Company Number: TR-NOVOPROD-427230

PATIENT
  Sex: Male
  Weight: 4 kg

DRUGS (2)
  1. HUMALOG [Concomitant]
     Active Substance: INSULIN LISPRO
     Indication: GESTATIONAL DIABETES
     Dosage: 18 U, QD
     Route: 064
     Dates: start: 20140718, end: 20140820
  2. INSULIN DETEMIR FLEXPEN [Suspect]
     Active Substance: INSULIN DETEMIR
     Indication: GESTATIONAL DIABETES
     Dosage: 10 U, QD
     Route: 064
     Dates: start: 20140718, end: 20140821

REACTIONS (5)
  - Urinary tract infection neonatal [Recovered/Resolved]
  - Jaundice neonatal [Recovered/Resolved]
  - Jaundice neonatal [Recovered/Resolved]
  - Foetal exposure during pregnancy [Recovered/Resolved]
  - Oedema neonatal [Recovered/Resolved]

NARRATIVE: CASE EVENT DATE: 20140718
